FAERS Safety Report 7355752-8 (Version None)
Quarter: 2011Q1

REPORT INFORMATION
  Report Type: 
  Country: None (occurrence: None)
  Receive Date: 20110311
  Receipt Date: 20110311
  Transmission Date: 20110831
  Serious: Yes (Death, Life-Threatening, Disabling)
  Sender: FDA-Public Use
  Company Number: None

PATIENT
  Sex: Female
  Weight: 64.4108 kg

DRUGS (2)
  1. ZATUS LO MIL RENAL FAILING [Suspect]
     Indication: BIPOLAR DISORDER
     Dosage: INVEGA 1 MONTHLY
  2. INVEGA [Suspect]
     Indication: SCHIZOPHRENIA
     Dosage: ZYFUS 10 MIL DAILEY

REACTIONS (3)
  - PAIN [None]
  - DIARRHOEA [None]
  - MYALGIA [None]
